FAERS Safety Report 25817532 (Version 1)
Quarter: 2025Q3

REPORT INFORMATION
  Report Type: Spontaneous
  Country: US (occurrence: US)
  Receive Date: 20250918
  Receipt Date: 20250918
  Transmission Date: 20251020
  Serious: No
  Sender: CALLIDITAS THERAPEUTICS AB
  Company Number: US-Calliditas-2025CAL02839

PATIENT
  Age: 48 Year
  Sex: Male

DRUGS (12)
  1. TARPEYO [Suspect]
     Active Substance: BUDESONIDE
     Indication: IgA nephropathy
     Route: 048
     Dates: start: 2025
  2. ALBUTEROL [Concomitant]
     Active Substance: ALBUTEROL
  3. ALLOPURINOL [Concomitant]
     Active Substance: ALLOPURINOL
  4. ATORVASTATIN [Concomitant]
     Active Substance: ATORVASTATIN
  5. BUPROPION HYDROCHLORIDE [Concomitant]
     Active Substance: BUPROPION HYDROCHLORIDE
  6. DICLOFENAC [Concomitant]
     Active Substance: DICLOFENAC
  7. MELATONIN [Concomitant]
     Active Substance: MELATONIN
  8. METOPROLOL [Concomitant]
     Active Substance: METOPROLOL
  9. ONDANSETRON [Concomitant]
     Active Substance: ONDANSETRON
  10. PIOGLITAZONE [Concomitant]
     Active Substance: PIOGLITAZONE
  11. TADALAFIL [Concomitant]
     Active Substance: TADALAFIL
  12. TRAZODONE [Concomitant]
     Active Substance: TRAZODONE HYDROCHLORIDE

REACTIONS (6)
  - COVID-19 [Unknown]
  - Swelling [Unknown]
  - Arthralgia [Unknown]
  - Groin pain [Unknown]
  - Intentional dose omission [Unknown]
  - Gait disturbance [Unknown]

NARRATIVE: CASE EVENT DATE: 20250801
